FAERS Safety Report 8326688-0 (Version None)
Quarter: 2012Q2

REPORT INFORMATION
  Report Type: 
  Country: None (occurrence: None)
  Receive Date: 20120501
  Receipt Date: 20120426
  Transmission Date: 20120825
  Serious: Yes (Hospitalization)
  Sender: FDA-Public Use
  Company Number: US-BRISTOL-MYERS SQUIBB COMPANY-16395634

PATIENT
  Age: 35 Year
  Sex: Female

DRUGS (3)
  1. MYCOPHENOLATE MOFETIL (CELLCEPT) [Concomitant]
     Route: 048
  2. NULOJIX [Suspect]
     Indication: RENAL TRANSPLANT
     Dates: start: 20120112
  3. METOPROLOL TARTRATE [Concomitant]
     Route: 048

REACTIONS (1)
  - CONVULSION [None]
